FAERS Safety Report 6480520-9 (Version None)
Quarter: 2009Q4

REPORT INFORMATION
  Report Type: 
  Country: None (occurrence: None)
  Receive Date: 20091202
  Receipt Date: 20091119
  Transmission Date: 20100525
  Serious: Yes (Hospitalization)
  Sender: FDA-Public Use
  Company Number: SPV1-2009-02348

PATIENT
  Sex: Male
  Weight: 88.4 kg

DRUGS (3)
  1. FOSRENOL [Suspect]
     Indication: HYPERPHOSPHATAEMIA
     Dosage: 1000 MG, 3X/DAY:TID, ORAL ; 500 MG, 3X/DAY;TID, ORAL ; 250 MG (1/4 TABLET), ORAL
     Route: 048
     Dates: start: 20090101, end: 20091001
  2. FOSRENOL [Suspect]
     Indication: HYPERPHOSPHATAEMIA
     Dosage: 1000 MG, 3X/DAY:TID, ORAL ; 500 MG, 3X/DAY;TID, ORAL ; 250 MG (1/4 TABLET), ORAL
     Route: 048
     Dates: start: 20091001, end: 20091101
  3. FOSRENOL [Suspect]
     Indication: HYPERPHOSPHATAEMIA
     Dosage: 1000 MG, 3X/DAY:TID, ORAL ; 500 MG, 3X/DAY;TID, ORAL ; 250 MG (1/4 TABLET), ORAL
     Route: 048
     Dates: start: 20091101

REACTIONS (5)
  - EMOTIONAL DISTRESS [None]
  - FATIGUE [None]
  - IRRITABILITY [None]
  - RESPIRATORY DISORDER [None]
  - SLEEP DISORDER [None]
